FAERS Safety Report 4363785-9 (Version None)
Quarter: 2004Q2

REPORT INFORMATION
  Report Type: 
  Country: None (occurrence: None)
  Receive Date: 20040521
  Receipt Date: 20040511
  Transmission Date: 20050107
  Serious: Yes (Life-Threatening)
  Sender: FDA-Public Use
  Company Number: 200310495BYL

PATIENT
  Age: 82 Year
  Sex: Male
  Weight: 60.25 kg

DRUGS (2)
  1. CIPROFLOXACIN [Suspect]
     Indication: INFECTION
     Dosage: 200 MG, TOTAL DAILY, INTRAVENOUS
     Route: 042
     Dates: start: 20031101, end: 20031112
  2. MAXIPIME [Suspect]
     Indication: INFECTION
     Dosage: 1 G, TOTAL DAILY, INTRAVENOUS
     Route: 042
     Dates: start: 20031101, end: 20031112

REACTIONS (4)
  - DEPRESSED LEVEL OF CONSCIOUSNESS [None]
  - DISORIENTATION [None]
  - PERSONALITY CHANGE [None]
  - RESTLESSNESS [None]
